FAERS Safety Report 9300265 (Version 1)
Quarter: 2013Q2

REPORT INFORMATION
  Report Type: Spontaneous
  Country: US (occurrence: US)
  Receive Date: 20130521
  Receipt Date: 20130521
  Transmission Date: 20140414
  Serious: No
  Sender: FDA-Public Use
  Company Number: US-BAYER-2013-062561

PATIENT
  Sex: Male
  Weight: 65.76 kg

DRUGS (5)
  1. BETASERON [Suspect]
     Dosage: .3 MG, QOD
     Route: 058
  2. TIZANIDINE HYDROCHLORIDE [Concomitant]
     Dosage: 2 MG, UNK
  3. VITAMIN D [Concomitant]
     Dosage: 400 UNIT
  4. PROVIGIL [Concomitant]
     Dosage: 100 MG, UNK
  5. MULTIVITAMIN [Concomitant]

REACTIONS (1)
  - Myalgia [Unknown]
